FAERS Safety Report 5296201-3 (Version None)
Quarter: 2007Q2

REPORT INFORMATION
  Report Type: 
  Country: None (occurrence: None)
  Receive Date: 20070413
  Receipt Date: 20070410
  Transmission Date: 20071010
  Serious: Yes (Other)
  Sender: FDA-Public Use
  Company Number: JP-GLAXOSMITHKLINE-B0462190A

PATIENT
  Age: 10 Year
  Sex: Male
  Weight: 32.4 kg

DRUGS (4)
  1. RELENZA [Suspect]
     Indication: INFLUENZA
     Dosage: 10MG TWICE PER DAY
     Route: 055
     Dates: start: 20070306, end: 20070308
  2. MEIACT [Concomitant]
     Indication: PHARYNGITIS
     Dosage: 2.4G PER DAY
     Route: 048
     Dates: start: 20070305
  3. HOKUNALIN [Concomitant]
     Indication: BRONCHITIS
     Dosage: 1.11G PER DAY
     Route: 048
     Dates: start: 20070305, end: 20070308
  4. MUCODYNE [Concomitant]
     Indication: BRONCHITIS
     Dosage: 1.59MG PER DAY
     Route: 048
     Dates: start: 20070305, end: 20070308

REACTIONS (2)
  - CONVULSION [None]
  - LOSS OF CONSCIOUSNESS [None]
